FAERS Safety Report 12364531 (Version 1)
Quarter: 2016Q2

REPORT INFORMATION
  Report Type: Report from Study
  Country: US (occurrence: US)
  Receive Date: 20160512
  Receipt Date: 20160512
  Transmission Date: 20160815
  Serious: No
  Sender: FDA-Public Use
  Company Number: US-MDT-ADR-2015-02301

PATIENT
  Age: 67 Year
  Sex: Male

DRUGS (21)
  1. MORPHINE [Suspect]
     Active Substance: MORPHINE
     Dosage: 2.998 MG/DAY
     Route: 037
  2. MORPHINE [Suspect]
     Active Substance: MORPHINE
     Route: 065
  3. CYMBALTA [Suspect]
     Active Substance: DULOXETINE HYDROCHLORIDE
     Route: 065
  4. NORTRIPTYLINE [Suspect]
     Active Substance: NORTRIPTYLINE
     Route: 065
  5. DIAZEPAM. [Suspect]
     Active Substance: DIAZEPAM
     Route: 065
  6. PROVIGIL [Suspect]
     Active Substance: MODAFINIL
     Route: 065
  7. TIZANIDINE. [Suspect]
     Active Substance: TIZANIDINE
     Route: 065
  8. CLONIDINE. [Suspect]
     Active Substance: CLONIDINE
     Dosage: 99.92 MCG/DAY
     Route: 037
  9. LANSOPRAZOLE. [Suspect]
     Active Substance: LANSOPRAZOLE
     Route: 065
  10. VOLTAREN [Suspect]
     Active Substance: DICLOFENAC SODIUM
     Route: 065
  11. BUPIVACAINE. [Suspect]
     Active Substance: BUPIVACAINE
     Dosage: 3.97 MG/DAY
     Route: 037
  12. NEURONTIN [Suspect]
     Active Substance: GABAPENTIN
     Route: 065
  13. BACLOFEN. [Suspect]
     Active Substance: BACLOFEN
     Dosage: 199.8 MCG/DAY
     Route: 037
  14. AMLODIPINE [Suspect]
     Active Substance: AMLODIPINE BESYLATE
     Route: 065
  15. HYOSCYAMINE SULFATE. [Suspect]
     Active Substance: HYOSCYAMINE SULFATE
     Route: 065
  16. KETOCONAZOLE. [Suspect]
     Active Substance: KETOCONAZOLE
     Route: 065
  17. TESTOSTERONE CYPIONATE. [Suspect]
     Active Substance: TESTOSTERONE CYPIONATE
     Route: 065
  18. MULTIVITAMIN [Suspect]
     Active Substance: VITAMINS
     Route: 065
  19. METOPROLOL TARTRATE. [Suspect]
     Active Substance: METOPROLOL TARTRATE
     Route: 065
  20. ACETAMINOPHEN ER [Suspect]
     Active Substance: ACETAMINOPHEN
     Route: 065
  21. BACLOFEN. [Suspect]
     Active Substance: BACLOFEN
     Route: 065

REACTIONS (1)
  - Movement disorder [Unknown]

NARRATIVE: CASE EVENT DATE: 20151130
